FAERS Safety Report 5909467-0 (Version None)
Quarter: 2008Q4

REPORT INFORMATION
  Report Type: 
  Country: None (occurrence: None)
  Receive Date: 20081006
  Receipt Date: 20080924
  Transmission Date: 20090506
  Serious: Yes (Hospitalization)
  Sender: FDA-Public Use
  Company Number: JP-PFIZER INC-2008082110

PATIENT
  Age: 81 Year
  Sex: Male

DRUGS (3)
  1. GABAPEN [Suspect]
     Indication: POST HERPETIC NEURALGIA
     Dosage: DAILY DOSE:600MG
     Route: 048
     Dates: start: 20080207, end: 20080324
  2. TEGRETOL [Suspect]
     Indication: POST HERPETIC NEURALGIA
     Dosage: DAILY DOSE:300MG
     Route: 048
     Dates: start: 20080201, end: 20080313
  3. TRYPTANOL [Concomitant]
     Route: 048
     Dates: start: 20080110, end: 20080324

REACTIONS (1)
  - DRUG ERUPTION [None]
